FAERS Safety Report 4956548-4 (Version None)
Quarter: 2006Q1

REPORT INFORMATION
  Report Type: 
  Country: None (occurrence: None)
  Receive Date: 20060329
  Receipt Date: 20051025
  Transmission Date: 20060701
  Serious: Yes (Death, Hospitalization)
  Sender: FDA-Public Use
  Company Number: US-MERCK-0510USA09299

PATIENT
  Age: 69 Year
  Sex: Male
  Weight: 84 kg

DRUGS (12)
  1. VIOXX [Suspect]
     Indication: PAIN
     Route: 048
     Dates: start: 20030901, end: 20040714
  2. ASPIRIN [Concomitant]
     Route: 065
     Dates: start: 19900101, end: 20040704
  3. CASODEX [Concomitant]
     Route: 065
  4. FUROSEMIDE [Concomitant]
     Route: 065
     Dates: end: 20040704
  5. ISOSORBIDE [Concomitant]
     Route: 065
     Dates: start: 20040315, end: 20040704
  6. MIRTAZAPINE [Concomitant]
     Indication: DEPRESSION
     Route: 065
  7. PREDNISONE [Concomitant]
     Route: 065
     Dates: start: 20040117, end: 20040704
  8. AMIODARONE [Concomitant]
     Indication: ARRHYTHMIA
     Route: 065
     Dates: start: 19900101, end: 20040704
  9. CORDARONE [Concomitant]
     Indication: ARRHYTHMIA
     Route: 065
     Dates: start: 20040616, end: 20040704
  10. OXYCODONE [Concomitant]
     Indication: PAIN
     Route: 065
     Dates: start: 20030830, end: 20040529
  11. KETOCONAZOLE [Concomitant]
     Indication: PAIN
     Route: 065
     Dates: start: 20040217, end: 20040704
  12. BEXTRA [Concomitant]
     Indication: PAIN
     Route: 065
     Dates: start: 20040117, end: 20040704

REACTIONS (7)
  - ANGINA PECTORIS [None]
  - CORONARY ARTERY DISEASE [None]
  - DEATH [None]
  - HYPERTENSION [None]
  - HYPOKALAEMIA [None]
  - MYOCARDIAL INFARCTION [None]
  - PROSTATE CANCER [None]
